FAERS Safety Report 5875662-2 (Version None)
Quarter: 2008Q3

REPORT INFORMATION
  Report Type: 
  Country: None (occurrence: None)
  Receive Date: 20080904
  Receipt Date: 20080820
  Transmission Date: 20090109
  Serious: Yes (Death, Hospitalization)
  Sender: FDA-Public Use
  Company Number: 2008AL005365

PATIENT
  Age: 57 Year
  Sex: Female

DRUGS (1)
  1. DIGOXIN [Suspect]
     Dosage: 0.125 MG, DAILY, PO
     Route: 048

REACTIONS (4)
  - HAEMORRHAGE [None]
  - LIVER INJURY [None]
  - RENAL FAILURE [None]
  - VOMITING [None]
